FAERS Safety Report 25322481 (Version 1)
Quarter: 2025Q2

REPORT INFORMATION
  Report Type: Spontaneous
  Country: JP (occurrence: JP)
  Receive Date: 20250516
  Receipt Date: 20250516
  Transmission Date: 20250717
  Serious: Yes (Hospitalization, Other)
  Sender: ACCORD
  Company Number: JP-Accord-484559

PATIENT
  Age: 74 Year
  Sex: Male

DRUGS (6)
  1. OLMESARTAN [Suspect]
     Active Substance: OLMESARTAN
     Indication: Hypertension
  2. BETAMETHASONE W/DEXCHLORPHENIRAMINE [Concomitant]
     Indication: Pruritus
     Dosage: 0.25/0.4 MG
  3. DAPAGLIFLOZIN [Concomitant]
     Active Substance: DAPAGLIFLOZIN
     Indication: Diabetes mellitus
  4. FAMOTIDINE [Concomitant]
     Active Substance: FAMOTIDINE
     Indication: Acid peptic disease
  5. MIGLITOL [Concomitant]
     Active Substance: MIGLITOL
     Indication: Diabetes mellitus
  6. SENNOSIDES [Concomitant]
     Active Substance: SENNOSIDES
     Indication: Constipation

REACTIONS (1)
  - Gastritis [Recovered/Resolved]
